FAERS Safety Report 19984808 (Version 1)
Quarter: 2021Q4

REPORT INFORMATION
  Report Type: Spontaneous
  Country: US (occurrence: US)
  Receive Date: 20211022
  Receipt Date: 20211022
  Transmission Date: 20220304
  Serious: No
  Sender: FDA-Public Use
  Company Number: None

PATIENT

DRUGS (2)
  1. TRAZODONE [Suspect]
     Active Substance: TRAZODONE HYDROCHLORIDE
  2. SEROQUEL [Suspect]
     Active Substance: QUETIAPINE FUMARATE

REACTIONS (4)
  - Hypomania [None]
  - Dizziness [None]
  - Dizziness [None]
  - Drug ineffective [None]
